FAERS Safety Report 15566135 (Version 1)
Quarter: 2018Q4

REPORT INFORMATION
  Report Type: Spontaneous
  Country: US (occurrence: US)
  Receive Date: 20181030
  Receipt Date: 20181030
  Transmission Date: 20190205
  Serious: No
  Sender: FDA-Public Use
  Company Number: US-NOVOPROD-603791

PATIENT
  Age: 66 Year
  Sex: Female

DRUGS (1)
  1. VAGIFEM LD [Suspect]
     Active Substance: ESTRADIOL
     Indication: ATROPHIC VULVOVAGINITIS
     Dosage: 10 MCG, THREE TIMES PER WEEK
     Route: 067
     Dates: start: 2015

REACTIONS (4)
  - Drug ineffective [Unknown]
  - Atrophic vulvovaginitis [Unknown]
  - Vaginal infection [Recovered/Resolved]
  - Disease recurrence [Unknown]

NARRATIVE: CASE EVENT DATE: 201804
